FAERS Safety Report 6656555-X (Version None)
Quarter: 2010Q1

REPORT INFORMATION
  Report Type: 
  Country: None (occurrence: None)
  Receive Date: 20100329
  Receipt Date: 20100303
  Transmission Date: 20100710
  Serious: Yes (Death, Other)
  Sender: FDA-Public Use
  Company Number: FR-CEPHALON-2010001704

PATIENT
  Sex: Female

DRUGS (2)
  1. TREANDA [Suspect]
     Indication: NON-HODGKIN'S LYMPHOMA
     Dates: start: 20081007, end: 20081221
  2. MABTHERA [Suspect]

REACTIONS (6)
  - COUGH [None]
  - DEATH [None]
  - FATIGUE [None]
  - JAUNDICE [None]
  - PANCYTOPENIA [None]
  - PYREXIA [None]
